FAERS Safety Report 17769393 (Version 6)
Quarter: 2022Q3

REPORT INFORMATION
  Report Type: Report from Study
  Country: CA (occurrence: CA)
  Receive Date: 20200512
  Receipt Date: 20220708
  Transmission Date: 20221027
  Serious: Yes (Other)
  Sender: FDA-Public Use
  Company Number: CA-GLAXOSMITHKLINE-CA2020AMR072341

PATIENT

DRUGS (3)
  1. MEPOLIZUMAB [Suspect]
     Active Substance: MEPOLIZUMAB
     Indication: Asthma
     Dosage: 100 MG, Z (MONTHLY)
     Route: 042
     Dates: start: 20180328
  2. VENTOLIN [Suspect]
     Active Substance: ALBUTEROL SULFATE
     Indication: Product used for unknown indication
     Dosage: UNK
  3. BREO ELLIPTA [Suspect]
     Active Substance: FLUTICASONE FUROATE\VILANTEROL TRIFENATATE
     Indication: Product used for unknown indication
     Dosage: UNK

REACTIONS (14)
  - Seizure [Recovered/Resolved]
  - Meningioma [Not Recovered/Not Resolved]
  - Loss of consciousness [Unknown]
  - Balance disorder [Unknown]
  - Amnesia [Unknown]
  - Illness [Unknown]
  - Discomfort [Unknown]
  - Head discomfort [Unknown]
  - Nasopharyngitis [Unknown]
  - Headache [Recovered/Resolved]
  - Sinus disorder [Unknown]
  - Loss of personal independence in daily activities [Unknown]
  - Disorientation [Unknown]
  - Somnolence [Unknown]
